FAERS Safety Report 6191057-9 (Version None)
Quarter: 2009Q2

REPORT INFORMATION
  Report Type: 
  Country: None (occurrence: None)
  Receive Date: 20090513
  Receipt Date: 20090428
  Transmission Date: 20091009
  Serious: Yes (Hospitalization, Other)
  Sender: FDA-Public Use
  Company Number: ADE# 09-189DPR

PATIENT
  Age: 69 Year
  Sex: Male

DRUGS (2)
  1. DIGOXIN [Suspect]
     Indication: CARDIAC DISORDER
     Dosage: ONCE DAILY
     Dates: start: 20080501, end: 20090301
  2. COREG [Suspect]

REACTIONS (11)
  - CATATONIA [None]
  - DRUG TOXICITY [None]
  - HYPERSOMNIA [None]
  - HYPOPHAGIA [None]
  - LOSS OF CONSCIOUSNESS [None]
  - OVERDOSE [None]
  - STUPOR [None]
  - VASCULAR GRAFT [None]
  - VERTEBRAL INJURY [None]
  - VOMITING [None]
  - WEIGHT DECREASED [None]
